FAERS Safety Report 9145650 (Version 1)
Quarter: 2013Q1

REPORT INFORMATION
  Report Type: Spontaneous
  Country: US (occurrence: US)
  Receive Date: 20130307
  Receipt Date: 20130307
  Transmission Date: 20140127
  Serious: No
  Sender: FDA-Public Use
  Company Number: US-PFIZER INC-2013078939

PATIENT
  Sex: Male

DRUGS (1)
  1. LYRICA [Suspect]
     Dosage: UNK
     Dates: start: 2012

REACTIONS (4)
  - Feeling drunk [Unknown]
  - Dizziness [Unknown]
  - Balance disorder [Unknown]
  - Coordination abnormal [Unknown]
